FAERS Safety Report 9786640 (Version 1)
Quarter: 2013Q4

REPORT INFORMATION
  Report Type: Spontaneous
  Country: JP (occurrence: JP)
  Receive Date: 20131227
  Receipt Date: 20131227
  Transmission Date: 20140711
  Serious: Yes (Other)
  Sender: FDA-Public Use
  Company Number: JP-MYLANLABS-2013S1028424

PATIENT
  Age: 77 Year
  Sex: Female

DRUGS (7)
  1. MEMANTINE [Suspect]
     Indication: DEMENTIA ALZHEIMER^S TYPE
     Dosage: 5MG
     Route: 065
  2. DONEPEZIL [Suspect]
     Indication: DEMENTIA ALZHEIMER^S TYPE
     Dosage: 3MG
     Route: 048
  3. DONEPEZIL [Suspect]
     Indication: DEMENTIA ALZHEIMER^S TYPE
     Dosage: 5MG (FROM DAY 10)
     Route: 048
  4. DONEPEZIL [Suspect]
     Indication: DEMENTIA ALZHEIMER^S TYPE
     Dosage: 10MG (FROM DAY 24)
     Route: 048
  5. TELMISARTAN [Concomitant]
     Dosage: 40MG
     Route: 048
  6. NIFEDIPINE [Concomitant]
     Dosage: 40MG
     Route: 048
  7. PRAVASTATIN [Concomitant]
     Dosage: 5MG
     Route: 048

REACTIONS (2)
  - Bradycardia [Unknown]
  - Electrocardiogram PR prolongation [Recovered/Resolved]
